FAERS Safety Report 9633246 (Version 2)
Quarter: 2013Q4

REPORT INFORMATION
  Report Type: Spontaneous
  Country: FR (occurrence: None)
  Receive Date: 20131017
  Receipt Date: 20131029
  Transmission Date: 20140711
  Serious: Yes (Other)
  Sender: FDA-Public Use
  Company Number: AUR-APL-2013-08619

PATIENT
  Age: 77 Year
  Sex: Female

DRUGS (5)
  1. BISOPROLOL (BISOPROLOL) [Suspect]
     Indication: HYPERTENSION
     Route: 048
  2. METFORMINE (METFORMIN) [Suspect]
     Indication: TYPE 2 DIABETES MELLITUS
     Dosage: 500 MG, 1 IN 1 D
     Route: 048
  3. CADUET (CADUET) [Suspect]
     Indication: HYPERTENSION
     Dosage: 10 MG, 2 IN 1 D
     Route: 048
  4. TRIVASTAL (PIRIBEDIL) [Suspect]
     Indication: PARKINSON^S DISEASE
     Route: 048
     Dates: end: 2003
  5. MODOPAR (MADOPAR) [Suspect]
     Indication: PARKINSON^S DISEASE
     Dates: end: 2003

REACTIONS (3)
  - Alveolitis [None]
  - Interstitial lung disease [None]
  - Chest pain [None]
